FAERS Safety Report 19945777 (Version 1)
Quarter: 2021Q4

REPORT INFORMATION
  Report Type: Spontaneous
  Country: JP (occurrence: JP)
  Receive Date: 20211012
  Receipt Date: 20211012
  Transmission Date: 20220303
  Serious: Yes (Hospitalization)
  Sender: FDA-Public Use
  Company Number: JP-PFIZER INC-202101299511

PATIENT
  Age: 39 Year
  Sex: Male

DRUGS (2)
  1. PREGABALIN [Suspect]
     Active Substance: PREGABALIN
     Indication: Neuralgia
     Dosage: 600 MG, DAILY
  2. CELECOXIB [Concomitant]
     Active Substance: CELECOXIB
     Dosage: 200 MG, DAILY

REACTIONS (9)
  - Intentional product misuse [Unknown]
  - Withdrawal syndrome [Recovering/Resolving]
  - Respiratory distress [Recovering/Resolving]
  - Dyspnoea [Recovering/Resolving]
  - Decreased appetite [Recovering/Resolving]
  - Insomnia [Recovering/Resolving]
  - Anxiety [Recovered/Resolved]
  - Palpitations [Recovering/Resolving]
  - Restlessness [Recovering/Resolving]
